FAERS Safety Report 5347905-5 (Version None)
Quarter: 2007Q2

REPORT INFORMATION
  Report Type: 
  Country: None (occurrence: None)
  Receive Date: 20070606
  Receipt Date: 20070528
  Transmission Date: 20071010
  Serious: Yes (Other)
  Sender: FDA-Public Use
  Company Number: A0625884B

PATIENT
  Age: 43 Year
  Sex: Female

DRUGS (2)
  1. LAPATINIB [Suspect]
     Dosage: 1500MG PER DAY
     Route: 048
     Dates: start: 20060818
  2. TAXOL [Suspect]
     Dosage: 80MGM2 CYCLIC
     Route: 042
     Dates: start: 20060818

REACTIONS (1)
  - NEUTROPENIA [None]
